FAERS Safety Report 4501179-3 (Version None)
Quarter: 2004Q3

REPORT INFORMATION
  Report Type: 
  Country: None (occurrence: None)
  Receive Date: 20040927
  Receipt Date: 20040813
  Transmission Date: 20050211
  Serious: No
  Sender: FDA-Public Use
  Company Number: USA040875427

PATIENT
  Age: 8 Year
  Sex: Male
  Weight: 23 kg

DRUGS (2)
  1. STRATTERA [Suspect]
     Indication: ATTENTION DEFICIT/HYPERACTIVITY DISORDER
     Dosage: 25 MG/EVERY DAY
     Dates: start: 20040730
  2. CONCERTA [Concomitant]

REACTIONS (4)
  - ABNORMAL BEHAVIOUR [None]
  - INCREASED APPETITE [None]
  - MOOD SWINGS [None]
  - RESTLESSNESS [None]
